FAERS Safety Report 13169138 (Version 2)
Quarter: 2017Q1

REPORT INFORMATION
  Report Type: Spontaneous
  Country: LT (occurrence: LT)
  Receive Date: 20170201
  Receipt Date: 20170216
  Transmission Date: 20170428
  Serious: Yes (Life-Threatening)
  Sender: FDA-Public Use
  Company Number: LT-ROCHE-1886932

PATIENT
  Age: 55 Year
  Sex: Male

DRUGS (3)
  1. 5-FU [Concomitant]
     Active Substance: FLUOROURACIL
     Route: 065
  2. ERIVEDGE [Suspect]
     Active Substance: VISMODEGIB
     Indication: BASAL CELL CARCINOMA
     Route: 048
     Dates: start: 201508, end: 20161228
  3. CISPLATIN. [Concomitant]
     Active Substance: CISPLATIN
     Route: 065

REACTIONS (1)
  - Intracranial venous sinus thrombosis [Recovering/Resolving]

NARRATIVE: CASE EVENT DATE: 20161208
